FAERS Safety Report 21563544 (Version 1)
Quarter: 2022Q4

REPORT INFORMATION
  Report Type: Spontaneous
  Country: UA (occurrence: UA)
  Receive Date: 20221108
  Receipt Date: 20221108
  Transmission Date: 20230113
  Serious: Yes (Death, Other)
  Sender: FDA-Public Use
  Company Number: UA-AMGEN-UKRSP2022190734

PATIENT

DRUGS (2)
  1. ETELCALCETIDE [Suspect]
     Active Substance: ETELCALCETIDE
     Indication: Hyperparathyroidism secondary
     Dosage: 2.5 MILLIGRAM
     Route: 040
  2. ETELCALCETIDE [Suspect]
     Active Substance: ETELCALCETIDE
     Dosage: 5 MILLIGRAM
     Route: 040

REACTIONS (4)
  - Death [Fatal]
  - Cardiovascular disorder [Fatal]
  - Parathyroidectomy [Unknown]
  - Fracture [Unknown]
